FAERS Safety Report 8243573-3 (Version None)
Quarter: 2012Q1

REPORT INFORMATION
  Report Type: 
  Country: None (occurrence: None)
  Receive Date: 20120329
  Receipt Date: 20120321
  Transmission Date: 20120608
  Serious: Yes (Hospitalization)
  Sender: FDA-Public Use
  Company Number: JP-CTI_01449_2012

PATIENT
  Sex: Female

DRUGS (2)
  1. ISOVIST INJECTION 300 (IOTROLAN) [Suspect]
     Indication: HYSTEROSALPINGOGRAM
     Dosage: DAILY DOSE 10 ML
     Dates: start: 20120303, end: 20120303
  2. MEIACT MS - CEFDITOREN PIVOXIL [Suspect]
     Indication: PROPHYLAXIS
     Dosage: DAILY DOSE 300 MG
     Route: 048
     Dates: start: 20120303, end: 20120304

REACTIONS (5)
  - SWELLING FACE [None]
  - DERMATITIS ALLERGIC [None]
  - GENERALISED OEDEMA [None]
  - PRURITUS GENERALISED [None]
  - DRUG ERUPTION [None]
